FAERS Safety Report 19373085 (Version 7)
Quarter: 2021Q3

REPORT INFORMATION
  Report Type: Report from Study
  Country: CH (occurrence: CH)
  Receive Date: 20210604
  Receipt Date: 20210716
  Transmission Date: 20211014
  Serious: Yes (Life-Threatening, Hospitalization, Other)
  Sender: FDA-Public Use
  Company Number: CH-BRISTOL-MYERS SQUIBB COMPANY-BMS-2021-053755

PATIENT
  Age: 36 Year
  Sex: Female

DRUGS (2)
  1. INTERLEUKIN?2 [Suspect]
     Active Substance: ALDESLEUKIN
     Indication: MALIGNANT MELANOMA
     Dosage: 11.00 MIO. UNITS, QD
     Route: 065
     Dates: start: 20210602
  2. TUMOR?INFILTRATING LYMPHOCYTES [Suspect]
     Active Substance: LYMPHOCYTES
     Indication: MALIGNANT MELANOMA
     Dosage: UNK
     Route: 065
     Dates: start: 20210602

REACTIONS (6)
  - Arterial haemorrhage [Recovered/Resolved]
  - Cardiomyopathy [Not Recovered/Not Resolved]
  - Hallucination [Not Recovered/Not Resolved]
  - Acute respiratory distress syndrome [Not Recovered/Not Resolved]
  - Haemolysis [Not Recovered/Not Resolved]
  - Cytokine release syndrome [Not Recovered/Not Resolved]

NARRATIVE: CASE EVENT DATE: 20210602
